FAERS Safety Report 6545980-3 (Version None)
Quarter: 2010Q1

REPORT INFORMATION
  Report Type: 
  Country: None (occurrence: None)
  Receive Date: 20100121
  Receipt Date: 20100121
  Transmission Date: 20100710
  Serious: Yes (Other)
  Sender: FDA-Public Use
  Company Number: None

PATIENT

DRUGS (1)
  1. TYLENOL (CAPLET) [Suspect]

REACTIONS (3)
  - DIARRHOEA [None]
  - EDUCATIONAL PROBLEM [None]
  - NAUSEA [None]
